FAERS Safety Report 23480061 (Version 1)
Quarter: 2024Q1

REPORT INFORMATION
  Report Type: Report from Study
  Country: US (occurrence: US)
  Receive Date: 20240205
  Receipt Date: 20240205
  Transmission Date: 20240410
  Serious: Yes (Hospitalization)
  Sender: FDA-Public Use
  Company Number: US-ORG100014127-2023000791

PATIENT
  Age: 62 Year
  Sex: Male

DRUGS (26)
  1. LYSODREN [Suspect]
     Active Substance: MITOTANE
     Indication: Adrenocortical carcinoma
     Dosage: 500 MG: 01 TABLET TWICE DAILY
     Route: 048
     Dates: start: 20230425
  2. LYSODREN [Suspect]
     Active Substance: MITOTANE
     Indication: Adrenocortical carcinoma
     Dosage: TAKE 6 TABLETS BY MOUTH TWICE DAILY
     Route: 048
  3. AMLODIPINE [Concomitant]
     Active Substance: AMLODIPINE BESYLATE
     Indication: Product used for unknown indication
  4. BACLOFEN [Concomitant]
     Active Substance: BACLOFEN
     Indication: Product used for unknown indication
  5. BENAZEP/HCTZ TAB 20-25MG [Concomitant]
     Indication: Product used for unknown indication
  6. CISPLATIN INJ 50MG [Concomitant]
     Indication: Product used for unknown indication
  7. DEXAMETHASONE [Concomitant]
     Active Substance: DEXAMETHASONE
     Indication: Product used for unknown indication
  8. DILAUDID TAB 2MG [Concomitant]
     Indication: Product used for unknown indication
  9. DOXORUBICIN [Concomitant]
     Active Substance: DOXORUBICIN
     Indication: Product used for unknown indication
  10. ETOPOSIDE INJ 500/25M [Concomitant]
     Indication: Product used for unknown indication
  11. FENTANYL DIS 100MCG/H [Concomitant]
     Indication: Product used for unknown indication
  12. GABAPENTIN TAB 800MG [Concomitant]
     Indication: Product used for unknown indication
  13. HYDROCO/APAP TAB 10-325MG [Concomitant]
     Indication: Product used for unknown indication
  14. HYDROCORT TAB 10MG [Concomitant]
     Indication: Product used for unknown indication
  15. MORPHINE SUL TAB 15MG ER [Concomitant]
     Indication: Product used for unknown indication
  16. MULTIVITAMIN TAB MEN 50+ [Concomitant]
     Indication: Product used for unknown indication
  17. OLANZAPINE TAB 5MG ODT [Concomitant]
     Indication: Product used for unknown indication
  18. ONDANSETRON TAB 4MG ODT [Concomitant]
     Indication: Product used for unknown indication
  19. OSTEO BI-FLX TAB 250-200 [Concomitant]
     Indication: Product used for unknown indication
  20. POT CL MICRO TAB 20MEQ ER [Concomitant]
     Indication: Product used for unknown indication
  21. POTASSIUM POW SORBATE [Concomitant]
     Indication: Product used for unknown indication
  22. PROCHLORPER TAB 10MG [Concomitant]
     Indication: Product used for unknown indication
  23. ROSUVASTATIN [Concomitant]
     Active Substance: ROSUVASTATIN
     Indication: Product used for unknown indication
  24. SENNA TAB 8.6MG; [Concomitant]
     Indication: Product used for unknown indication
  25. TURMERIC CAP 500MG [Concomitant]
     Indication: Product used for unknown indication
  26. ZIEXTENZO INJ 6/0.6ML [Concomitant]
     Indication: Product used for unknown indication

REACTIONS (4)
  - Vomiting [Not Recovered/Not Resolved]
  - Nausea [Not Recovered/Not Resolved]
  - Diarrhoea [Not Recovered/Not Resolved]
  - Fatigue [Unknown]

NARRATIVE: CASE EVENT DATE: 20230501
